FAERS Safety Report 17672664 (Version 1)
Quarter: 2020Q2

REPORT INFORMATION
  Report Type: Spontaneous
  Country: US (occurrence: US)
  Receive Date: 20200415
  Receipt Date: 20200415
  Transmission Date: 20200713
  Serious: No
  Sender: FDA-Public Use
  Company Number: US-TARO-2020TAR00044

PATIENT

DRUGS (2)
  1. IBUPROFEN ORAL SUSPENSION USP 100 MG/5 ML (OTC CHILDREN?S) [Suspect]
     Active Substance: IBUPROFEN
     Indication: TEETHING
     Dosage: 5 MILLILITER, AS NEEDED
     Route: 048
     Dates: start: 20200101
  2. IBUPROFEN ORAL SUSPENSION USP 100 MG/5 ML (OTC CHILDREN?S) [Suspect]
     Active Substance: IBUPROFEN
     Indication: NASOPHARYNGITIS
     Dosage: 5 MILLILITER, AS NEEDED
     Route: 048
     Dates: start: 201912

REACTIONS (2)
  - Vomiting [Recovered/Resolved]
  - Diarrhoea [Unknown]

NARRATIVE: CASE EVENT DATE: 202001
